FAERS Safety Report 18245895 (Version 1)
Quarter: 2020Q3

REPORT INFORMATION
  Report Type: Spontaneous
  Country: US (occurrence: US)
  Receive Date: 20200909
  Receipt Date: 20200909
  Transmission Date: 20201103
  Serious: Yes (Other)
  Sender: FDA-Public Use
  Company Number: None

PATIENT
  Age: 63 Year
  Sex: Female
  Weight: 75.6 kg

DRUGS (2)
  1. IMFINZI [Suspect]
     Active Substance: DURVALUMAB
     Indication: NON-SMALL CELL LUNG CANCER
     Dosage: ?          OTHER FREQUENCY:EVERY 14 DAYS;?
     Route: 041
  2. IMFINZI [Concomitant]
     Active Substance: DURVALUMAB
     Dates: start: 20191010, end: 20200707

REACTIONS (7)
  - Pyrexia [None]
  - Flushing [None]
  - Nausea [None]
  - Chills [None]
  - Headache [None]
  - Infusion related reaction [None]
  - Feeling cold [None]

NARRATIVE: CASE EVENT DATE: 20200707
